FAERS Safety Report 10349483 (Version 2)
Quarter: 2014Q3

REPORT INFORMATION
  Report Type: Spontaneous
  Country: DE (occurrence: None)
  Receive Date: 20140728
  Receipt Date: 20140811
  Transmission Date: 20150326
  Serious: Yes (Hospitalization)
  Sender: FDA-Public Use
  Company Number: 2014DE0310

PATIENT
  Age: 46 Year
  Sex: Female

DRUGS (6)
  1. KINERET [Suspect]
     Active Substance: ANAKINRA
     Indication: JUVENILE IDIOPATHIC ARTHRITIS
     Dosage: 100 MG (100 MG, 1 IN 1 D)
     Dates: start: 20140611, end: 20140704
  2. METHYLPREDNISOLONE (METHYLPREDNISOLONE) (METHYLPREDNISOLONE)? [Concomitant]
  3. DEKRISTOL (COLECALCIFEROL) (COLECALCIFEROL) [Concomitant]
  4. PANTOZOL (PANTOPRAZOLE SODIUM SESQUIHYDRATE) (PANTOPRAZOLE SODIUM SESQUIHYDRATE) [Concomitant]
  5. METHOTREXATE (METHOTREXATE) (METHOTREXATE) [Concomitant]
     Active Substance: METHOTREXATE
  6. FOSAMAX (ALENDRONATE SODIUM) (ALENDRONATE SODIUM) (ALENDRONATE SODIUM)? [Concomitant]

REACTIONS (7)
  - Haemoglobin increased [None]
  - Inflammation [None]
  - Ultrasound Doppler abnormal [None]
  - Thrombosis [None]
  - Fatigue [None]
  - Arthralgia [None]
  - Anaemia [None]

NARRATIVE: CASE EVENT DATE: 20140704
